FAERS Safety Report 26066294 (Version 1)
Quarter: 2025Q4

REPORT INFORMATION
  Report Type: Spontaneous
  Country: US (occurrence: US)
  Receive Date: 20251119
  Receipt Date: 20251119
  Transmission Date: 20260117
  Serious: No
  Sender: MEDLINE INDUSTRIES, LP
  Company Number: US-Medline Industries, LP-2188913

PATIENT

DRUGS (1)
  1. READYPREP CHG [Suspect]
     Active Substance: CHLORHEXIDINE GLUCONATE

REACTIONS (1)
  - Pruritus [Unknown]
